FAERS Safety Report 9088704 (Version 1)
Quarter: 2013Q1

REPORT INFORMATION
  Report Type: Report from Study
  Country: US (occurrence: US)
  Receive Date: 20130218
  Receipt Date: 20130218
  Transmission Date: 20140127
  Serious: No
  Sender: FDA-Public Use
  Company Number: US-ABBOTT-12P-163-0947346-00

PATIENT
  Sex: Male
  Weight: 104.42 kg

DRUGS (6)
  1. SIMCOR 1000MG/20MG [Suspect]
     Indication: HIGH DENSITY LIPOPROTEIN INCREASED
     Dosage: 1000/20MG ONE AT BEDTIME FOR ONE WEEK
  2. SIMCOR 1000MG/20MG [Suspect]
     Dosage: 1000/20MG TWO AT BEDTIME
  3. ASPIRIN [Concomitant]
     Indication: PRODUCT USED FOR UNKNOWN INDICATION
     Route: 048
  4. METFORMIN [Concomitant]
     Indication: PRODUCT USED FOR UNKNOWN INDICATION
     Route: 048
  5. ALLERGY NASAL SPRAY [Concomitant]
     Indication: PRODUCT USED FOR UNKNOWN INDICATION
  6. TESTOSTERONE INJECTIONS [Concomitant]
     Indication: PRODUCT USED FOR UNKNOWN INDICATION
     Dates: start: 201204

REACTIONS (9)
  - Flushing [Unknown]
  - Erythema [Unknown]
  - Feeling hot [Unknown]
  - Swelling face [Recovered/Resolved]
  - Local swelling [Recovering/Resolving]
  - Skin irritation [Recovered/Resolved]
  - Blood testosterone decreased [Unknown]
  - Eye swelling [Unknown]
  - Fluid retention [Unknown]
